FAERS Safety Report 5001718-2 (Version None)
Quarter: 2006Q2

REPORT INFORMATION
  Report Type: 
  Country: None (occurrence: None)
  Receive Date: 20060515
  Receipt Date: 20060511
  Transmission Date: 20061013
  Serious: Yes (Other)
  Sender: FDA-Public Use
  Company Number: CA-AMGEN-US158146

PATIENT
  Sex: Male

DRUGS (18)
  1. ARANESP [Suspect]
     Indication: DIALYSIS
     Dates: start: 20050819
  2. EPREX [Suspect]
     Route: 042
     Dates: start: 20020329, end: 20050819
  3. PHENYTOIN [Suspect]
     Route: 048
     Dates: start: 20050815
  4. ISONIAZID [Suspect]
     Route: 048
     Dates: start: 20050322
  5. ASPIRIN 10GR TIMED DISINTEGRATION TAB [Concomitant]
     Route: 048
     Dates: start: 20020411
  6. CYANOCOBALAMIN [Concomitant]
     Route: 048
     Dates: start: 20030523
  7. DOCUSATE SODIUM [Concomitant]
     Route: 048
     Dates: start: 20041018
  8. FOLIC ACID [Concomitant]
     Route: 048
     Dates: start: 20020620
  9. HYDRALAZINE HYDROCHLORIDE [Concomitant]
     Route: 048
     Dates: start: 20030826
  10. LACTULOSE [Concomitant]
     Route: 048
     Dates: start: 20041018
  11. SIMVASTATIN [Concomitant]
     Route: 048
     Dates: start: 20030926
  12. DIPHENHYDRAMINE HYDROCHLORIDE [Concomitant]
     Dates: start: 20050405
  13. LEVOTHYROXINE SODIUM [Concomitant]
     Route: 048
  14. PYRIDOXINE HCL [Concomitant]
     Route: 048
     Dates: start: 20050815
  15. CALCIUM CARBONATE [Concomitant]
  16. OSMOSAL [Concomitant]
     Route: 048
     Dates: start: 20040811
  17. HEPARIN [Concomitant]
  18. VENOFER [Concomitant]
     Dates: start: 20020620, end: 20050907

REACTIONS (3)
  - ANTI-ERYTHROCYTE ANTIBODY POSITIVE [None]
  - APLASIA PURE RED CELL [None]
  - THERAPEUTIC RESPONSE DECREASED [None]
